FAERS Safety Report 4869159-6 (Version None)
Quarter: 2005Q4

REPORT INFORMATION
  Report Type: 
  Country: None (occurrence: None)
  Receive Date: 20051227
  Receipt Date: 20051221
  Transmission Date: 20060501
  Serious: Yes (Hospitalization, Other)
  Sender: FDA-Public Use
  Company Number: HQWYE112421DEC05

PATIENT
  Age: 51 Year
  Sex: Female

DRUGS (4)
  1. RAPAMUNE [Suspect]
     Indication: PROPHYLAXIS AGAINST TRANSPLANT REJECTION
     Dosage: 2.5 MG 1X PER 1 DAY
     Route: 048
     Dates: start: 20040716, end: 20051219
  2. ATENOLOL [Concomitant]
  3. SIMVASTATIN [Concomitant]
  4. PREDNISONE [Concomitant]

REACTIONS (6)
  - DIARRHOEA [None]
  - HAEMOGLOBIN DECREASED [None]
  - INTESTINAL ULCER [None]
  - LARGE INTESTINAL ULCER [None]
  - PYREXIA [None]
  - ULCER HAEMORRHAGE [None]
